FAERS Safety Report 8447356-0 (Version None)
Quarter: 2012Q2

REPORT INFORMATION
  Report Type: 
  Country: None (occurrence: None)
  Receive Date: 20120619
  Receipt Date: 20120614
  Transmission Date: 20120825
  Serious: Yes (Hospitalization)
  Sender: FDA-Public Use
  Company Number: PHHO2012DE009018

PATIENT
  Age: 33 Year
  Sex: Male
  Weight: 81 kg

DRUGS (3)
  1. MYCOPHENOLIC ACID [Suspect]
     Indication: PANCREAS TRANSPLANT
     Dosage: 720 MG, BID
     Route: 048
     Dates: start: 20111013
  2. PREDNISOLONE [Concomitant]
     Dosage: 10 MG, QD
     Route: 048
     Dates: start: 20111013
  3. PROGRAF [Concomitant]
     Dosage: 8 MG, BID
     Route: 048
     Dates: start: 20111013

REACTIONS (4)
  - BACTERIAL DIARRHOEA [None]
  - GASTROENTERITIS [None]
  - HUMERUS FRACTURE [None]
  - LOWER LIMB FRACTURE [None]
